FAERS Safety Report 10210219 (Version 1)
Quarter: 2014Q2

REPORT INFORMATION
  Report Type: Report from Study
  Country: US (occurrence: US)
  Receive Date: 20140602
  Receipt Date: 20140602
  Transmission Date: 20141212
  Serious: Yes (Hospitalization)
  Sender: FDA-Public Use
  Company Number: PHEH2014US010964

PATIENT
  Sex: Male
  Weight: 53.29 kg

DRUGS (2)
  1. TOBI PODHALER [Suspect]
     Indication: CYSTIC FIBROSIS
     Dosage: 112 MG, TWICE A DAY
     Route: 055
  2. TOBI PODHALER [Suspect]
     Indication: LUNG DISORDER

REACTIONS (2)
  - Aortic rupture [Unknown]
  - Platelet disorder [Unknown]
